FAERS Safety Report 20394085 (Version 1)
Quarter: 2022Q1

REPORT INFORMATION
  Report Type: Spontaneous
  Country: TW (occurrence: TW)
  Receive Date: 20220129
  Receipt Date: 20220129
  Transmission Date: 20220424
  Serious: Yes (Death, Hospitalization, Other)
  Sender: FDA-Public Use
  Company Number: TW-AMGEN-TWNSP2022010451

PATIENT
  Age: 59 Year
  Sex: Female

DRUGS (6)
  1. BEVACIZUMAB [Suspect]
     Active Substance: BEVACIZUMAB
     Indication: Adrenocortical carcinoma
     Dosage: 900 MILLIGRAM
     Route: 065
  2. BEVACIZUMAB [Suspect]
     Active Substance: BEVACIZUMAB
     Indication: Off label use
  3. ETOPOSIDE [Concomitant]
     Active Substance: ETOPOSIDE
  4. CISPLATIN [Concomitant]
     Active Substance: CISPLATIN
  5. MITOTANE [Concomitant]
     Active Substance: MITOTANE
     Dosage: 500 MILLIGRAM, QD
  6. MITOTANE [Concomitant]
     Active Substance: MITOTANE
     Dosage: 1000 MILLIGRAM, QD

REACTIONS (7)
  - Death [Fatal]
  - Adrenocortical carcinoma [Unknown]
  - Decreased appetite [Unknown]
  - Renal failure [Unknown]
  - Vaginal haemorrhage [Unknown]
  - Anaemia [Unknown]
  - Off label use [Unknown]
